FAERS Safety Report 5010941-2 (Version None)
Quarter: 2006Q2

REPORT INFORMATION
  Report Type: 
  Country: None (occurrence: None)
  Receive Date: 20060525
  Receipt Date: 20060320
  Transmission Date: 20061013
  Serious: Yes (Death)
  Sender: FDA-Public Use
  Company Number: US-AVENTIS-200612789US

PATIENT
  Age: 34 Year
  Sex: Male

DRUGS (2)
  1. RIFAMPIN [Suspect]
     Indication: TUBERCULOSIS
     Dates: start: 20001115, end: 20010123
  2. PYRAZINAMIDE [Suspect]
     Indication: TUBERCULOSIS
     Dates: start: 20001115, end: 20010123

REACTIONS (9)
  - ABDOMINAL DISCOMFORT [None]
  - ALANINE AMINOTRANSFERASE INCREASED [None]
  - ASPARTATE AMINOTRANSFERASE INCREASED [None]
  - BLOOD ALKALINE PHOSPHATASE INCREASED [None]
  - BLOOD BILIRUBIN INCREASED [None]
  - HEPATIC FAILURE [None]
  - NAUSEA [None]
  - VOMITING [None]
  - YELLOW SKIN [None]
